FAERS Safety Report 4932945-8 (Version None)
Quarter: 2006Q1

REPORT INFORMATION
  Report Type: 
  Country: None (occurrence: None)
  Receive Date: 20060306
  Receipt Date: 20060201
  Transmission Date: 20060701
  Serious: Yes (Hospitalization)
  Sender: FDA-Public Use
  Company Number: US-BRISTOL-MYERS SQUIBB COMPANY-13268917

PATIENT
  Age: 78 Year
  Sex: Male
  Weight: 63 kg

DRUGS (4)
  1. CETUXIMAB [Suspect]
     Indication: NEOPLASM MALIGNANT
     Dosage: 400 MG/M2 (712 MG) INITIATED 02-DEC-2005) F/B 250 MG/M2 WEEKLY. HELD (DATE NOT REPORTED).
     Route: 042
     Dates: start: 20060111, end: 20060111
  2. CARBOPLATIN [Suspect]
     Indication: NEOPLASM MALIGNANT
     Dosage: INITIATED 28-DEC-2005. AUC 1.  HELD (DATE NOT REPORTED).
     Route: 042
     Dates: start: 20060111, end: 20060111
  3. PACLITAXEL [Suspect]
     Indication: NEOPLASM MALIGNANT
     Dosage: INITIATED 28-DEC-2005.  40 MG/M2.  HELD (DATE NOT REPORTED).
     Route: 042
     Dates: start: 20060111, end: 20060111
  4. RADIATION THERAPY [Suspect]
     Indication: NEOPLASM MALIGNANT
     Dosage: INITIATED 28-DEC-2005. HELD (DATE NOT REPORTED).
     Dates: start: 20060116, end: 20060116

REACTIONS (4)
  - ASTHENIA [None]
  - CELLULITIS [None]
  - DEHYDRATION [None]
  - RASH [None]
